FAERS Safety Report 18022112 (Version 2)
Quarter: 2020Q3

REPORT INFORMATION
  Report Type: Report from Study
  Country: ES (occurrence: ES)
  Receive Date: 20200714
  Receipt Date: 20200716
  Transmission Date: 20201103
  Serious: Yes (Hospitalization, Other)
  Sender: FDA-Public Use
  Company Number: ES-MYLANLABS-2020M1063591

PATIENT
  Age: 16 Year
  Sex: Female

DRUGS (3)
  1. SELUMETINIB. [Suspect]
     Active Substance: SELUMETINIB
     Indication: NEUROFIBROMATOSIS
     Dosage: UNK
     Route: 048
     Dates: start: 201910
  2. FENTANYL. [Suspect]
     Active Substance: FENTANYL
     Indication: PAIN
     Dosage: UNK
  3. SELUMETINIB. [Suspect]
     Active Substance: SELUMETINIB
     Indication: NEUROFIBROMA

REACTIONS (8)
  - Toxicity to various agents [Unknown]
  - Pain [Unknown]
  - Disease progression [Not Recovered/Not Resolved]
  - Gait disturbance [Unknown]
  - Vertigo [Unknown]
  - Tachycardia [Unknown]
  - Hypertension [Unknown]
  - Drug ineffective [Unknown]

NARRATIVE: CASE EVENT DATE: 202002
